FAERS Safety Report 18949963 (Version 1)
Quarter: 2021Q1

REPORT INFORMATION
  Report Type: Spontaneous
  Country: US (occurrence: US)
  Receive Date: 20210227
  Receipt Date: 20210227
  Transmission Date: 20210420
  Serious: No
  Sender: FDA-Public Use
  Company Number: US-TEVA-2021-US-1883781

PATIENT
  Sex: Female

DRUGS (3)
  1. LENVIMA [Interacting]
     Active Substance: LENVATINIB
     Indication: ENDOMETRIAL CANCER
     Route: 065
     Dates: start: 20210128
  2. LENVIMA [Interacting]
     Active Substance: LENVATINIB
     Indication: BONE CANCER
  3. MORPHINE [Suspect]
     Active Substance: MORPHINE
     Route: 065

REACTIONS (3)
  - Drug interaction [Unknown]
  - Blood pressure increased [Unknown]
  - Hypersomnia [Unknown]

NARRATIVE: CASE EVENT DATE: 20210203
